FAERS Safety Report 5871496-3 (Version None)
Quarter: 2008Q3

REPORT INFORMATION
  Report Type: 
  Country: None (occurrence: None)
  Receive Date: 20080904
  Receipt Date: 20080904
  Transmission Date: 20090109
  Serious: Yes (Hospitalization)
  Sender: FDA-Public Use
  Company Number: None

PATIENT
  Sex: Female
  Weight: 86.1834 kg

DRUGS (2)
  1. AMOXICILLIN 875 [Suspect]
     Indication: OROPHARYNGEAL PAIN
     Dates: start: 20070621
  2. AMOXI / CLAV 875-125 TAB [Suspect]
     Indication: OROPHARYNGEAL PAIN
     Dosage: 1 TAB BY MOUTH TWICE DAILY
     Route: 048
     Dates: start: 20070911

REACTIONS (6)
  - BLINDNESS TRANSIENT [None]
  - CERVICAL VERTEBRAL FRACTURE [None]
  - LOSS OF CONSCIOUSNESS [None]
  - MOVEMENT DISORDER [None]
  - PAIN [None]
  - ROAD TRAFFIC ACCIDENT [None]
